FAERS Safety Report 5824562-2 (Version None)
Quarter: 2008Q3

REPORT INFORMATION
  Report Type: 
  Country: None (occurrence: None)
  Receive Date: 20080728
  Receipt Date: 20080718
  Transmission Date: 20090109
  Serious: Yes (Hospitalization)
  Sender: FDA-Public Use
  Company Number: US-MERCK-0807USA04010

PATIENT
  Age: 69 Year
  Sex: Female

DRUGS (8)
  1. ZOCOR [Suspect]
     Route: 048
  2. NITROGLYCERIN [Suspect]
     Route: 061
  3. [THERAPY UNSPECIFIED] [Suspect]
     Route: 065
  4. PLAVIX [Suspect]
     Route: 065
  5. PRILOSEC [Suspect]
     Route: 065
  6. RAMIPRIL [Concomitant]
     Route: 065
  7. ATENOLOL [Concomitant]
     Route: 065
  8. ASPIRIN [Concomitant]
     Route: 065

REACTIONS (9)
  - ABDOMINAL PAIN [None]
  - ABDOMINAL TENDERNESS [None]
  - ASTHENIA [None]
  - BACK PAIN [None]
  - CHEST PAIN [None]
  - DIZZINESS [None]
  - HYPERHIDROSIS [None]
  - NAUSEA [None]
  - PAIN IN EXTREMITY [None]
